FAERS Safety Report 7988933-0 (Version None)
Quarter: 2011Q4

REPORT INFORMATION
  Report Type: 
  Country: None (occurrence: None)
  Receive Date: 20111007
  Receipt Date: 20110812
  Transmission Date: 20120403
  Serious: No
  Sender: FDA-Public Use
  Company Number: 2011HGS-002430

PATIENT
  Age: 51 Year
  Sex: Female
  Weight: 109.7 kg

DRUGS (15)
  1. TYLENOL 4 (PANADEINE CO) (CODEINE PHOSPHATE, PARACETAMOL) [Concomitant]
  2. POTASSIUM [Concomitant]
  3. BENLYSTA [Suspect]
  4. TRAZODONE HCL [Concomitant]
  5. OMEPRAZOLE [Concomitant]
  6. PREMPRO (PROVELLA-14) (MEDROXYPROGESTERONE ACETATE, ESTROGENS CONJUGAT [Concomitant]
  7. LYRICA [Concomitant]
  8. TOPIRAMATE [Concomitant]
  9. BENLYSTA [Suspect]
     Indication: SYSTEMIC LUPUS ERYTHEMATOSUS
     Dosage: 1 IN 14 D, INTRAVENOUS DRIP
     Route: 042
     Dates: start: 20110629, end: 20110727
  10. SAVELLA [Concomitant]
  11. AZATHIOPRINE [Concomitant]
  12. EFFEXOR [Concomitant]
  13. B-12 (CYANOCOBALAMIN) [Concomitant]
  14. BUPAP (PHRENILIN) (BUTALBITAL, PARACETAMOL) [Concomitant]
  15. SOLU-MEDROL [Concomitant]

REACTIONS (1)
  - FATIGUE [None]
